FAERS Safety Report 23303425 (Version 2)
Quarter: 2024Q1

REPORT INFORMATION
  Report Type: Spontaneous
  Country: US (occurrence: US)
  Receive Date: 20231215
  Receipt Date: 20240312
  Transmission Date: 20240410
  Serious: Yes (Death)
  Sender: FDA-Public Use
  Company Number: US-PFIZER INC-202200365086

PATIENT
  Age: 69 Year
  Sex: Male

DRUGS (2)
  1. NIVESTYM [Suspect]
     Active Substance: FILGRASTIM-AAFI
     Dosage: 480 UG (480 MCG SQ 4-5 DOSES EVERY OTHER WEEK)
     Route: 058
  2. NIVESTYM [Suspect]
     Active Substance: FILGRASTIM-AAFI
     Dosage: 480 UG (480 MCG SQ 5 DOSES EVERY OTHER WEEK #10)
     Route: 058

REACTIONS (2)
  - Death [Fatal]
  - Off label use [Unknown]
